FAERS Safety Report 8616284-X (Version None)
Quarter: 2012Q3

REPORT INFORMATION
  Report Type: 
  Country: None (occurrence: None)
  Receive Date: 20120823
  Receipt Date: 20120815
  Transmission Date: 20120928
  Serious: Yes (Other)
  Sender: FDA-Public Use
  Company Number: US-ABBOTT-12P-163-0969351-00

PATIENT
  Sex: Male
  Weight: 101.24 kg

DRUGS (14)
  1. LAMICTAL [Suspect]
     Indication: CONVULSION
  2. PRAVACHOL [Concomitant]
     Indication: BLOOD CHOLESTEROL INCREASED
  3. TYLENOL [Concomitant]
     Indication: PAIN
  4. LISINOPRIL [Concomitant]
     Indication: HYPERTENSION
  5. METHOTREXATE [Concomitant]
     Indication: CROHN'S DISEASE
  6. HUMIRA [Suspect]
     Indication: CROHN'S DISEASE
  7. CYCLOBENZAPRINE [Concomitant]
     Indication: MUSCLE SPASMS
  8. FOLIC ACID [Concomitant]
     Indication: VITAMIN SUPPLEMENTATION
  9. PRILOSEC [Concomitant]
     Indication: GASTROOESOPHAGEAL REFLUX DISEASE
  10. PREDNISONE TAB [Suspect]
     Indication: CROHN'S DISEASE
  11. PHENERGAN HCL [Concomitant]
     Indication: CROHN'S DISEASE
  12. CLONAZEPAM [Concomitant]
     Indication: ANXIETY
  13. CLONAZEPAM [Concomitant]
     Indication: SLEEP DISORDER THERAPY
  14. PHENERGAN HCL [Concomitant]
     Indication: NAUSEA

REACTIONS (10)
  - PETIT MAL EPILEPSY [None]
  - SKIN INJURY [None]
  - DEVICE MALFUNCTION [None]
  - BLOOD GLUCOSE INCREASED [None]
  - INJECTION SITE DISCOLOURATION [None]
  - DRUG LEVEL DECREASED [None]
  - INJECTION SITE URTICARIA [None]
  - INCORRECT DOSE ADMINISTERED [None]
  - INJECTION SITE ERYTHEMA [None]
  - CROHN'S DISEASE [None]
